FAERS Safety Report 24685100 (Version 1)
Quarter: 2024Q4

REPORT INFORMATION
  Report Type: Spontaneous
  Country: CN (occurrence: CN)
  Receive Date: 20241202
  Receipt Date: 20241202
  Transmission Date: 20250115
  Serious: Yes (Death, Hospitalization, Other)
  Sender: Steriscience PTE
  Company Number: CN-STERISCIENCE B.V.-2024-ST-002011

PATIENT
  Age: 92 Year
  Sex: Male

DRUGS (32)
  1. MEROPENEM [Suspect]
     Active Substance: MEROPENEM
     Indication: Pneumonia bacterial
     Dosage: UNK
     Route: 065
     Dates: start: 2022, end: 2023
  2. MEROPENEM [Suspect]
     Active Substance: MEROPENEM
     Indication: Escherichia infection
  3. MEROPENEM [Suspect]
     Active Substance: MEROPENEM
     Indication: Pseudomonas infection
  4. MEROPENEM [Suspect]
     Active Substance: MEROPENEM
     Indication: Acinetobacter infection
  5. MEROPENEM [Suspect]
     Active Substance: MEROPENEM
     Indication: Anti-infective therapy
  6. IMIPENEM [Suspect]
     Active Substance: IMIPENEM
     Indication: Pneumonia bacterial
     Dosage: UNK
     Route: 065
     Dates: start: 2022, end: 2022
  7. IMIPENEM [Suspect]
     Active Substance: IMIPENEM
     Indication: Escherichia infection
     Dosage: TREATMENT ADJUSTED
     Route: 065
     Dates: start: 2022, end: 2023
  8. IMIPENEM [Suspect]
     Active Substance: IMIPENEM
     Indication: Pseudomonas infection
  9. IMIPENEM [Suspect]
     Active Substance: IMIPENEM
     Indication: Acinetobacter infection
  10. IMIPENEM [Suspect]
     Active Substance: IMIPENEM
     Indication: Anti-infective therapy
  11. AMIKACIN [Suspect]
     Active Substance: AMIKACIN
     Indication: Pneumonia bacterial
     Dosage: UNK
     Route: 065
     Dates: start: 2022, end: 2023
  12. AMIKACIN [Suspect]
     Active Substance: AMIKACIN
     Indication: Escherichia infection
  13. AMIKACIN [Suspect]
     Active Substance: AMIKACIN
     Indication: Pseudomonas infection
  14. AMIKACIN [Suspect]
     Active Substance: AMIKACIN
     Indication: Acinetobacter infection
  15. AMIKACIN [Suspect]
     Active Substance: AMIKACIN
     Indication: Anti-infective therapy
  16. VORICONAZOLE [Suspect]
     Active Substance: VORICONAZOLE
     Indication: Pneumonia bacterial
     Dosage: UNK
     Route: 065
     Dates: start: 2022, end: 2023
  17. VORICONAZOLE [Suspect]
     Active Substance: VORICONAZOLE
     Indication: Escherichia infection
  18. VORICONAZOLE [Suspect]
     Active Substance: VORICONAZOLE
     Indication: Pseudomonas infection
  19. VORICONAZOLE [Suspect]
     Active Substance: VORICONAZOLE
     Indication: Acinetobacter infection
  20. VORICONAZOLE [Suspect]
     Active Substance: VORICONAZOLE
     Indication: Anti-infective therapy
  21. OLANZAPINE [Concomitant]
     Active Substance: OLANZAPINE
     Indication: Dementia Alzheimer^s type
     Dosage: UNK
     Route: 065
  22. PIPERACILLIN SODIUM [Concomitant]
     Active Substance: PIPERACILLIN SODIUM
     Indication: Pneumonia bacterial
     Dosage: UNK
     Route: 065
     Dates: start: 2022, end: 2022
  23. PIPERACILLIN SODIUM [Concomitant]
     Active Substance: PIPERACILLIN SODIUM
     Indication: Escherichia infection
  24. PIPERACILLIN SODIUM [Concomitant]
     Active Substance: PIPERACILLIN SODIUM
     Indication: Pseudomonas infection
  25. PIPERACILLIN SODIUM [Concomitant]
     Active Substance: PIPERACILLIN SODIUM
     Indication: Acinetobacter infection
  26. PIPERACILLIN SODIUM [Concomitant]
     Active Substance: PIPERACILLIN SODIUM
     Indication: Anti-infective therapy
  27. SULBACTAM SODIUM [Concomitant]
     Active Substance: SULBACTAM SODIUM
     Indication: Pneumonia bacterial
     Dosage: UNK
     Route: 065
     Dates: start: 2022, end: 2022
  28. SULBACTAM SODIUM [Concomitant]
     Active Substance: SULBACTAM SODIUM
     Indication: Escherichia infection
  29. SULBACTAM SODIUM [Concomitant]
     Active Substance: SULBACTAM SODIUM
     Indication: Pseudomonas infection
  30. SULBACTAM SODIUM [Concomitant]
     Active Substance: SULBACTAM SODIUM
     Indication: Acinetobacter infection
  31. SULBACTAM SODIUM [Concomitant]
     Active Substance: SULBACTAM SODIUM
     Indication: Anti-infective therapy
  32. AMBROXOL [Concomitant]
     Active Substance: AMBROXOL
     Indication: Productive cough
     Dosage: UNK
     Route: 065
     Dates: start: 2022, end: 2022

REACTIONS (1)
  - Drug ineffective [Fatal]

NARRATIVE: CASE EVENT DATE: 20220101
